FAERS Safety Report 9285321 (Version 1)
Quarter: 2013Q2

REPORT INFORMATION
  Report Type: Spontaneous
  Country: AT (occurrence: None)
  Receive Date: 20130507
  Receipt Date: 20130507
  Transmission Date: 20140414
  Serious: Yes (Hospitalization, Other)
  Sender: FDA-Public Use
  Company Number: AT-ALKEM-000043

PATIENT
  Sex: Male

DRUGS (7)
  1. MYCOPHENOLATE MOFETIL [Suspect]
     Indication: IMMUNOSUPPRESSANT DRUG THERAPY
     Dosage: 1440.00-MG-1.0 DAY
  2. RILMENIDINE [Concomitant]
  3. CYCLOSPORIN A(CYCLOSPORIN A) [Concomitant]
  4. AMLODIPINE [Concomitant]
  5. PREDNISOLON [Concomitant]
  6. VALSARTAN/HYDROCHLOROTHIAZIDE [Concomitant]
  7. CARVEDILOL [Concomitant]

REACTIONS (3)
  - Interstitial lung disease [None]
  - Pyrexia [None]
  - Cytomegalovirus infection [None]
